FAERS Safety Report 15626082 (Version 1)
Quarter: 2018Q4

REPORT INFORMATION
  Report Type: Spontaneous
  Country: US (occurrence: US)
  Receive Date: 20181116
  Receipt Date: 20181116
  Transmission Date: 20190205
  Serious: Yes (Other)
  Sender: FDA-Public Use
  Company Number: US-ROCHE-2213218

PATIENT
  Age: 52 Year
  Sex: Female
  Weight: 58.11 kg

DRUGS (1)
  1. KADCYLA [Suspect]
     Active Substance: ADO-TRASTUZUMAB EMTANSINE
     Indication: LUNG NEOPLASM MALIGNANT
     Route: 065
     Dates: start: 201810

REACTIONS (15)
  - Off label use [Unknown]
  - Hunger [Not Recovered/Not Resolved]
  - Dysphagia [Not Recovered/Not Resolved]
  - Eating disorder [Not Recovered/Not Resolved]
  - Dysphonia [Not Recovered/Not Resolved]
  - Deafness [Unknown]
  - Weight decreased [Not Recovered/Not Resolved]
  - Feeding disorder [Not Recovered/Not Resolved]
  - Constipation [Unknown]
  - Intentional product use issue [Unknown]
  - Gastrooesophageal reflux disease [Recovered/Resolved]
  - Pain [Unknown]
  - Fear [Unknown]
  - Fatigue [Not Recovered/Not Resolved]
  - Cough [Not Recovered/Not Resolved]
